FAERS Safety Report 9891234 (Version 1)
Quarter: 2014Q1

REPORT INFORMATION
  Report Type: Spontaneous
  Country: US (occurrence: None)
  Receive Date: 20140211
  Receipt Date: 20140211
  Transmission Date: 20141002
  Serious: No
  Sender: FDA-Public Use
  Company Number: None

PATIENT
  Age: 23 Year
  Sex: Female
  Weight: 66.23 kg

DRUGS (2)
  1. SKYLA [Suspect]
     Indication: CONTRACEPTION
  2. RITALIN LA [Concomitant]

REACTIONS (4)
  - Haemorrhage [None]
  - Muscle spasms [None]
  - Medical device complication [None]
  - Device malfunction [None]
